FAERS Safety Report 8115648-0 (Version None)
Quarter: 2012Q1

REPORT INFORMATION
  Report Type: 
  Country: None (occurrence: None)
  Receive Date: 20120206
  Receipt Date: 20120201
  Transmission Date: 20120608
  Serious: Yes (Other)
  Sender: FDA-Public Use
  Company Number: US-BAYER-2012-011253

PATIENT
  Age: 57 Year
  Sex: Male
  Weight: 77 kg

DRUGS (3)
  1. ALEVE (CAPLET) [Suspect]
     Indication: HEADACHE
     Dosage: 2 UNITS
     Route: 048
     Dates: start: 20120128, end: 20120128
  2. INSULIN [Concomitant]
  3. METFORMIN HCL [Concomitant]

REACTIONS (5)
  - RASH MACULAR [None]
  - HYPERSENSITIVITY [None]
  - BLOOD PRESSURE INCREASED [None]
  - PRURITUS [None]
  - BLOOD PRESSURE DECREASED [None]
